FAERS Safety Report 26041072 (Version 1)
Quarter: 2025Q4

REPORT INFORMATION
  Report Type: Spontaneous
  Country: US (occurrence: None)
  Receive Date: 20251112
  Receipt Date: 20251112
  Transmission Date: 20260117
  Serious: Yes (Hospitalization, Disabling)
  Sender: FDA-CTU
  Company Number: None

PATIENT
  Age: 66 Year
  Sex: Male
  Weight: 67.5 kg

DRUGS (3)
  1. LANTUS [Suspect]
     Active Substance: INSULIN GLARGINE
     Dosage: FREQUENCY : DAILY;?
     Route: 030
     Dates: end: 20250331
  2. METFORMIN [Concomitant]
     Active Substance: METFORMIN HYDROCHLORIDE
  3. VITAMIN D [Concomitant]
     Active Substance: VITAMIN D NOS

REACTIONS (9)
  - Skin ulcer [None]
  - Loss of employment [None]
  - Visual impairment [None]
  - Vision blurred [None]
  - Photopsia [None]
  - Impaired driving ability [None]
  - Reading disorder [None]
  - Loss of personal independence in daily activities [None]
  - Neuropathy peripheral [None]
